FAERS Safety Report 11695060 (Version 5)
Quarter: 2016Q2

REPORT INFORMATION
  Report Type: Report from Study
  Country: US (occurrence: US)
  Receive Date: 20151103
  Receipt Date: 20160420
  Transmission Date: 20160815
  Serious: No
  Sender: FDA-Public Use
  Company Number: PHEH2015US011013

PATIENT
  Age: 55 Year
  Sex: Female
  Weight: 58.96 kg

DRUGS (1)
  1. GILENYA [Suspect]
     Active Substance: FINGOLIMOD HYDROCHLORIDE
     Indication: MULTIPLE SCLEROSIS
     Dosage: 0.5 MG, QD
     Route: 048
     Dates: start: 20140214, end: 20151031

REACTIONS (8)
  - Visual impairment [Unknown]
  - Diplopia [Unknown]
  - Insomnia [Unknown]
  - Fatigue [Unknown]
  - Accidental overdose [Unknown]
  - Sleep apnoea syndrome [Recovering/Resolving]
  - Hypersomnia [Unknown]
  - Uhthoff^s phenomenon [Unknown]

NARRATIVE: CASE EVENT DATE: 20150927
